FAERS Safety Report 7353922-6 (Version None)
Quarter: 2011Q1

REPORT INFORMATION
  Report Type: 
  Country: None (occurrence: None)
  Receive Date: 20110315
  Receipt Date: 20110301
  Transmission Date: 20110831
  Serious: Yes (Hospitalization)
  Sender: FDA-Public Use
  Company Number: PHHY2011FR17532

PATIENT
  Age: 86 Year
  Sex: Female

DRUGS (4)
  1. CELECTOL [Concomitant]
  2. ASPEGIC 325 [Concomitant]
  3. ACLASTA [Suspect]
     Indication: OSTEOPOROSIS POSTMENOPAUSAL
     Route: 042
     Dates: start: 20100210
  4. ALDACTAZINE [Concomitant]

REACTIONS (5)
  - HYPOKINESIA [None]
  - PULMONARY EMBOLISM [None]
  - PHLEBITIS [None]
  - DEEP VEIN THROMBOSIS [None]
  - DYSPNOEA [None]
